FAERS Safety Report 6840046-7 (Version None)
Quarter: 2010Q3

REPORT INFORMATION
  Report Type: 
  Country: None (occurrence: None)
  Receive Date: 20100714
  Receipt Date: 20100706
  Transmission Date: 20110219
  Serious: Yes (Other)
  Sender: FDA-Public Use
  Company Number: BR-ROCHE-713759

PATIENT
  Age: 47 Year
  Sex: Female

DRUGS (7)
  1. HERCEPTIN [Suspect]
     Route: 065
     Dates: start: 20091101, end: 20100101
  2. TAMOXIFEN [Concomitant]
     Dosage: DRUG REPORTED AS TAMOXITEN
  3. DOXORUBICIN HCL [Concomitant]
  4. CYCLOPHOSPHAMIDE [Concomitant]
  5. PACLITAXEL [Concomitant]
  6. DOCETAXEL [Concomitant]
  7. FOLIC ACID [Concomitant]

REACTIONS (4)
  - ARTHRALGIA [None]
  - HYPOPARATHYROIDISM [None]
  - MYALGIA [None]
  - OEDEMA PERIPHERAL [None]
